FAERS Safety Report 14471265 (Version 1)
Quarter: 2018Q1

REPORT INFORMATION
  Report Type: Spontaneous
  Country: US (occurrence: US)
  Receive Date: 20180130
  Receipt Date: 20180130
  Transmission Date: 20180509
  Serious: No
  Sender: FDA-Public Use
  Company Number: None

PATIENT
  Age: 5 Year
  Sex: Female
  Weight: 15.3 kg

DRUGS (2)
  1. OSELTAMIVIR [Suspect]
     Active Substance: OSELTAMIVIR
     Indication: INFLUENZA
     Dosage: ?          QUANTITY:1 CAPSULE(S);?
     Route: 048
     Dates: start: 20180129
  2. CLARITIIN [Concomitant]

REACTIONS (6)
  - Tremor [None]
  - Vomiting [None]
  - Middle insomnia [None]
  - Crying [None]
  - Abnormal sleep-related event [None]
  - Inappropriate affect [None]

NARRATIVE: CASE EVENT DATE: 20180130
